FAERS Safety Report 8342797-4 (Version None)
Quarter: 2012Q2

REPORT INFORMATION
  Report Type: 
  Country: None (occurrence: None)
  Receive Date: 20120503
  Receipt Date: 20120420
  Transmission Date: 20120825
  Serious: Yes (Death, Other)
  Sender: FDA-Public Use
  Company Number: 2012MA005259

PATIENT
  Age: 49 Year
  Sex: Female

DRUGS (6)
  1. CARBOPLATIN [Concomitant]
  2. DOXORUBICIN HCL [Concomitant]
  3. CISPLATIN [Concomitant]
  4. GEMCITABINE [Concomitant]
  5. PACLITAXEL [Suspect]
     Indication: BREAST CANCER
     Dosage: 175 MG/M2, Q3W
     Dates: start: 20050501
  6. TAMOXIFEN CITRATE [Concomitant]

REACTIONS (5)
  - THROMBOCYTOPENIA [None]
  - GENERAL PHYSICAL CONDITION ABNORMAL [None]
  - MYELODYSPLASTIC SYNDROME [None]
  - LEUKOPENIA [None]
  - ANAEMIA [None]
